FAERS Safety Report 6446546-6 (Version None)
Quarter: 2009Q4

REPORT INFORMATION
  Report Type: 
  Country: None (occurrence: None)
  Receive Date: 20091119
  Receipt Date: 20091112
  Transmission Date: 20100525
  Serious: Yes (Hospitalization)
  Sender: FDA-Public Use
  Company Number: GB-NOVOPROD-300737

PATIENT
  Sex: Female

DRUGS (2)
  1. INSULATARD [Suspect]
     Indication: TYPE 1 DIABETES MELLITUS
     Route: 058
  2. NOVORAPID [Suspect]
     Indication: TYPE 1 DIABETES MELLITUS
     Route: 058

REACTIONS (2)
  - INFECTION SUSCEPTIBILITY INCREASED [None]
  - INJECTION SITE ABSCESS [None]
